FAERS Safety Report 14475064 (Version 1)
Quarter: 2018Q1

REPORT INFORMATION
  Report Type: Spontaneous
  Country: US (occurrence: US)
  Receive Date: 20180201
  Receipt Date: 20180201
  Transmission Date: 20180509
  Serious: No
  Sender: FDA-Public Use
  Company Number: US-BAYER-200111846BCC

PATIENT
  Age: 71 Year
  Sex: Male
  Weight: 84.09 kg

DRUGS (1)
  1. ALEVE [Suspect]
     Active Substance: NAPROXEN SODIUM
     Indication: PAIN
     Dosage: 220 MG, BID
     Route: 048
     Dates: start: 20010916, end: 20010918

REACTIONS (2)
  - Abdominal pain upper [Recovered/Resolved]
  - Product use issue [Unknown]
